FAERS Safety Report 6577402-0 (Version None)
Quarter: 2010Q1

REPORT INFORMATION
  Report Type: 
  Country: None (occurrence: None)
  Receive Date: 20100211
  Receipt Date: 20100205
  Transmission Date: 20100710
  Serious: Yes (Hospitalization, Other)
  Sender: FDA-Public Use
  Company Number: US-BAYER-201011492NA

PATIENT
  Age: 50 Year
  Sex: Female

DRUGS (3)
  1. BETASERON [Suspect]
     Indication: DRUG USE FOR UNKNOWN INDICATION
     Route: 058
     Dates: start: 20000101
  2. ATENOLOL [Concomitant]
     Indication: HYPERTENSION
  3. PROZAC [Concomitant]

REACTIONS (6)
  - CARDIAC VALVE DISEASE [None]
  - GASTROENTERITIS SALMONELLA [None]
  - HERPES ZOSTER OPHTHALMIC [None]
  - HYPOTHYROIDISM [None]
  - PANIC ATTACK [None]
  - PYREXIA [None]
